FAERS Safety Report 8281817-2 (Version None)
Quarter: 2012Q2

REPORT INFORMATION
  Report Type: 
  Country: None (occurrence: None)
  Receive Date: 20120413
  Receipt Date: 20120405
  Transmission Date: 20120825
  Serious: Yes (Other)
  Sender: FDA-Public Use
  Company Number: PHHY2012US030714

PATIENT
  Sex: Male

DRUGS (1)
  1. IMATINIB MESYLATE [Suspect]
     Indication: POLYCYTHAEMIA VERA
     Dosage: UNK UKN, UNK

REACTIONS (1)
  - HYPERTENSIVE CARDIOMYOPATHY [None]
